FAERS Safety Report 22825472 (Version 3)
Quarter: 2023Q4

REPORT INFORMATION
  Report Type: Report from Study
  Country: US (occurrence: US)
  Receive Date: 20230816
  Receipt Date: 20231006
  Transmission Date: 20240110
  Serious: No
  Sender: FDA-Public Use
  Company Number: US-ABBVIE-5365239

PATIENT
  Sex: Female
  Weight: 46.266 kg

DRUGS (3)
  1. RINVOQ [Suspect]
     Active Substance: UPADACITINIB
     Indication: Crohn^s disease
     Route: 048
     Dates: start: 20230726, end: 20230821
  2. IRON [Suspect]
     Active Substance: IRON
     Indication: Product used for unknown indication
     Route: 065
     Dates: start: 20230728, end: 20230728
  3. IRON [Suspect]
     Active Substance: IRON
     Indication: Product used for unknown indication
     Route: 065
     Dates: start: 20230808, end: 20230808

REACTIONS (6)
  - Stoma creation [Recovered/Resolved]
  - Haemoglobin decreased [Recovering/Resolving]
  - Gastrointestinal stoma output increased [Recovered/Resolved]
  - Product residue present [Recovered/Resolved]
  - Dyspnoea exertional [Unknown]
  - Dizziness [Unknown]

NARRATIVE: CASE EVENT DATE: 20230101
